FAERS Safety Report 12526819 (Version 5)
Quarter: 2016Q3

REPORT INFORMATION
  Report Type: Spontaneous
  Country: US (occurrence: US)
  Receive Date: 20160705
  Receipt Date: 20160725
  Transmission Date: 20161109
  Serious: Yes (Hospitalization)
  Sender: FDA-Public Use
  Company Number: US-UNITED THERAPEUTICS-UNT-2016-010572

PATIENT
  Age: 66 Year
  Sex: Female
  Weight: 61.22 kg

DRUGS (4)
  1. LETAIRIS [Suspect]
     Active Substance: AMBRISENTAN
     Indication: PRODUCT USED FOR UNKNOWN INDICATION
     Dosage: 5 MG, QD
     Route: 065
  2. ADCIRCA [Concomitant]
     Active Substance: TADALAFIL
     Indication: PRODUCT USED FOR UNKNOWN INDICATION
     Dosage: UNK
  3. REMODULIN [Suspect]
     Active Substance: TREPROSTINIL
     Indication: PULMONARY ARTERIAL HYPERTENSION
     Dosage: 0.046 ?G/KG, CONTINUING
     Route: 041
     Dates: start: 20150708
  4. COUMADIN [Concomitant]
     Active Substance: WARFARIN SODIUM
     Indication: PRODUCT USED FOR UNKNOWN INDICATION

REACTIONS (11)
  - Pallor [Unknown]
  - Device use error [Unknown]
  - Flushing [Unknown]
  - Diarrhoea [Unknown]
  - Cough [Unknown]
  - Asthenia [Unknown]
  - Hypoxia [Unknown]
  - Altered state of consciousness [Unknown]
  - Vomiting [Unknown]
  - Presyncope [Unknown]
  - Malaise [Unknown]

NARRATIVE: CASE EVENT DATE: 201606
